FAERS Safety Report 25626637 (Version 1)
Quarter: 2025Q3

REPORT INFORMATION
  Report Type: Spontaneous
  Country: GB (occurrence: GB)
  Receive Date: 20250731
  Receipt Date: 20250731
  Transmission Date: 20251020
  Serious: Yes (Other)
  Sender: REGENERON
  Company Number: GB-BAYER-2025A100001

PATIENT
  Age: 81 Year
  Sex: Female

DRUGS (5)
  1. EYLEA [Suspect]
     Active Substance: AFLIBERCEPT
     Indication: Neovascular age-related macular degeneration
     Route: 031
     Dates: start: 20250128, end: 20250128
  2. EYLEA [Suspect]
     Active Substance: AFLIBERCEPT
     Route: 031
     Dates: start: 20250305, end: 20250305
  3. EYLEA [Suspect]
     Active Substance: AFLIBERCEPT
     Route: 031
     Dates: start: 20250408, end: 20250408
  4. UNSPECIFIED INGREDIENT [Concomitant]
     Active Substance: UNSPECIFIED INGREDIENT
     Indication: Product used for unknown indication
     Dates: start: 202210
  5. LUCENTIS [Concomitant]
     Active Substance: RANIBIZUMAB
     Indication: Product used for unknown indication
     Dates: start: 202210

REACTIONS (7)
  - Blindness unilateral [Recovered/Resolved]
  - Choroidal neovascularisation [Unknown]
  - Eye inflammation [Recovered/Resolved]
  - Iridocyclitis [Recovered/Resolved]
  - Intraocular pressure decreased [Unknown]
  - Trabeculectomy [Unknown]
  - Visual impairment [Unknown]

NARRATIVE: CASE EVENT DATE: 20250425
